FAERS Safety Report 10920825 (Version 1)
Quarter: 2015Q1

REPORT INFORMATION
  Report Type: Spontaneous
  Country: US (occurrence: None)
  Receive Date: 20150313
  Receipt Date: 20150313
  Transmission Date: 20150721
  Serious: Yes (Other)
  Sender: FDA-Public Use
  Company Number: None

PATIENT
  Age: 55 Year
  Sex: Female
  Weight: 77.11 kg

DRUGS (4)
  1. REPLENS [Suspect]
     Active Substance: CARBOMER 934\GLYCERIN\METHYLPARABEN\PROPYLPARABEN\SODIUM HYDROXIDE
     Indication: VULVOVAGINAL DRYNESS
     Dosage: VAGINAL MOISTURIZER  ?EVERY 3 DAYS
     Route: 067
     Dates: start: 20150228, end: 20150309
  2. VITAMIN C [Concomitant]
     Active Substance: ASCORBIC ACID
  3. REPLENS [Suspect]
     Active Substance: CARBOMER 934\GLYCERIN\METHYLPARABEN\PROPYLPARABEN\SODIUM HYDROXIDE
     Indication: MENOPAUSE
     Dosage: VAGINAL MOISTURIZER  ?EVERY 3 DAYS
     Route: 067
     Dates: start: 20150228, end: 20150309
  4. CALCIUM [Concomitant]
     Active Substance: CALCIUM

REACTIONS (2)
  - Muscle spasms [None]
  - Application site haemorrhage [None]

NARRATIVE: CASE EVENT DATE: 20150309
